FAERS Safety Report 6654140-7 (Version None)
Quarter: 2010Q1

REPORT INFORMATION
  Report Type: 
  Country: None (occurrence: None)
  Receive Date: 20100326
  Receipt Date: 20100315
  Transmission Date: 20100710
  Serious: Yes (Hospitalization)
  Sender: FDA-Public Use
  Company Number: FR-PFIZER INC-2010033388

PATIENT
  Age: 61 Year
  Sex: Male

DRUGS (6)
  1. ARACYTINE [Suspect]
     Dosage: 3500 MG, UNK
     Route: 042
     Dates: start: 20100128, end: 20100128
  2. TAHOR [Suspect]
     Dosage: UNK
     Route: 048
     Dates: end: 20100201
  3. CARBOPLATIN [Suspect]
     Dosage: 440 MG, UNK
     Route: 042
     Dates: start: 20100127, end: 20100127
  4. MABTHERA [Suspect]
     Dosage: 660 MG, CYCLIC
     Route: 042
     Dates: end: 20100128
  5. DEXAMETHASONE [Suspect]
     Dosage: UNK
     Dates: start: 20100127, end: 20100130
  6. PLAVIX [Suspect]
     Dosage: UNK
     Route: 048
     Dates: end: 20100201

REACTIONS (4)
  - CONFUSIONAL STATE [None]
  - CYTOLYTIC HEPATITIS [None]
  - HYPONATRAEMIA [None]
  - PYREXIA [None]
